FAERS Safety Report 3949792 (Version 1)
Quarter: 2020Q3

REPORT INFORMATION
  Report Type: Spontaneous
  Country: US (occurrence: None)
  Receive Date: 20030521
  Receipt Date: 20030521
  Transmission Date: 20201104
  Serious: Yes (Life-Threatening, Other)
  Sender: FDA-Public Use
  Company Number: None

PATIENT
  Age: 77 Year
  Sex: Male
  Weight: 88.3 kg

DRUGS (11)
  1. PROMETHAZINE [Concomitant]
     Active Substance: PROMETHAZINE HYDROCHLORIDE
  2. FERROUS SULFATE. [Suspect]
     Active Substance: FERROUS SULFATE
     Indication: PROSTATE CANCER
     Dosage: UNKNOWN DOSE/ORAL
     Route: 048
     Dates: start: 20030520
  3. ACETAMINOPHEN. [Concomitant]
     Active Substance: ACETAMINOPHEN
  4. TPN [Concomitant]
     Active Substance: AMINO ACIDS\DEXTROSE\ELECTROLYTES NOS\SOYBEAN OIL
  5. RANITIDINE. [Concomitant]
     Active Substance: RANITIDINE
  6. ONDANSETRON [Concomitant]
     Active Substance: ONDANSETRON
  7. FERROUS SULFATE. [Suspect]
     Active Substance: FERROUS SULFATE
     Indication: HAEMATOCRIT DECREASED
     Dosage: UNKNOWN DOSE/ORAL
     Route: 048
     Dates: start: 20030520
  8. METOPROLOL. [Concomitant]
     Active Substance: METOPROLOL
  9. MORPHINE [Concomitant]
     Active Substance: MORPHINE
  10. REGLAN [Concomitant]
     Active Substance: METOCLOPRAMIDE HYDROCHLORIDE
  11. MIDAZOLAM HYDROCHLORIDE. [Concomitant]
     Active Substance: MIDAZOLAM HYDROCHLORIDE

REACTIONS (6)
  - Nausea [None]
  - Oxygen saturation decreased [None]
  - Vomiting [None]
  - Heart rate increased [None]
  - Tachypnoea [None]
  - Blood pressure increased [None]

NARRATIVE: CASE EVENT DATE: 20030520
